FAERS Safety Report 25577430 (Version 1)
Quarter: 2025Q3

REPORT INFORMATION
  Report Type: Spontaneous
  Country: US (occurrence: US)
  Receive Date: 20250718
  Receipt Date: 20250718
  Transmission Date: 20251021
  Serious: No
  Sender: NOVO NORDISK
  Company Number: US-NOVOPROD-1444142

PATIENT
  Age: 37 Year
  Sex: Male
  Weight: 77.098 kg

DRUGS (3)
  1. VICTOZA [Suspect]
     Active Substance: LIRAGLUTIDE
     Indication: Product used for unknown indication
  2. RYBELSUS [Suspect]
     Active Substance: SEMAGLUTIDE
     Indication: Product used for unknown indication
  3. REZDIFFRA [Concomitant]
     Active Substance: RESMETIROM
     Indication: Product used for unknown indication

REACTIONS (2)
  - Fatigue [Unknown]
  - Arthralgia [Unknown]
